FAERS Safety Report 21796849 (Version 1)
Quarter: 2022Q4

REPORT INFORMATION
  Report Type: Other
  Country: None (occurrence: US)
  Receive Date: 20221230
  Receipt Date: 20221230
  Transmission Date: 20230113
  Serious: Yes (Death, Hospitalization)
  Sender: FDA-Public Use
  Company Number: US-Ajanta Pharma USA Inc.-2136285

PATIENT
  Age: 58 Year
  Sex: Female

DRUGS (4)
  1. TOFACITINIB CITRATE [Suspect]
     Active Substance: TOFACITINIB CITRATE
     Indication: COVID-19 pneumonia
     Route: 065
  2. DEXAMETHASONE [Suspect]
     Active Substance: DEXAMETHASONE
     Route: 065
  3. REMDESIVIR [Concomitant]
     Active Substance: REMDESIVIR
  4. OXYGEN [Concomitant]
     Active Substance: OXYGEN
     Route: 045

REACTIONS (4)
  - Haemophagocytic lymphohistiocytosis [Fatal]
  - Enterococcal infection [Fatal]
  - Herpes simplex [Fatal]
  - Septic shock [Fatal]
